FAERS Safety Report 8932142 (Version 2)
Quarter: 2012Q4

REPORT INFORMATION
  Report Type: 
  Country: DE (occurrence: DE)
  Receive Date: 20121128
  Receipt Date: 20121212
  Transmission Date: 20130627
  Serious: Yes (Other)
  Sender: FDA-Public Use
  Company Number: DE-PFIZER INC-2012296206

PATIENT
  Age: 25 Year
  Sex: Male
  Weight: 53 kg

DRUGS (9)
  1. HYDROCORTISONE [Suspect]
     Dosage: 100mg
  2. HYDROCORTISONE [Suspect]
     Dosage: 100 mg/day
  3. GLUCOSE [Concomitant]
     Dosage: 8g, UNK
  4. SUFENTANIL [Concomitant]
     Indication: ANESTHESIA
     Dosage: 20 ?g, UNK
     Route: 042
  5. PROPOFOL [Concomitant]
     Dosage: 150 mg, UNK
  6. ROCURONIUM [Concomitant]
     Dosage: 50 mg, UNK
  7. NORADRENALINE [Concomitant]
     Dosage: 0.2 ?g/kgBW/min
  8. NORADRENALINE [Concomitant]
     Dosage: 0.07 ?g/kgBW/min
  9. HYDROXYETHYL STARCH [Concomitant]
     Dosage: 500 ml, UNK

REACTIONS (2)
  - Cardiovascular insufficiency [Recovered/Resolved]
  - Steroid withdrawal syndrome [Recovered/Resolved]
